FAERS Safety Report 5140358-1 (Version None)
Quarter: 2006Q4

REPORT INFORMATION
  Report Type: 
  Country: None (occurrence: None)
  Receive Date: 20061031
  Receipt Date: 20061023
  Transmission Date: 20070319
  Serious: Yes (Death)
  Sender: FDA-Public Use
  Company Number: US-SANOFI-SYNTHELABO-A03200606419

PATIENT
  Sex: Male
  Weight: 77.1 kg

DRUGS (6)
  1. GLAUCOMA MEDICATION [Concomitant]
     Dosage: UNK
     Route: 065
  2. ANTIBIOTICS [Concomitant]
     Dosage: UNK
     Route: 065
  3. BLOOD PRESSURE MEDICATIONS [Concomitant]
     Dosage: UNK
     Route: 065
  4. ATIVAN [Concomitant]
     Dosage: UNK
     Route: 065
  5. PLAVIX [Suspect]
     Indication: ARTERIAL REPAIR
     Route: 048
  6. PLAVIX [Suspect]
     Indication: TRANSIENT ISCHAEMIC ATTACK
     Route: 048

REACTIONS (8)
  - CARDIAC FAILURE CONGESTIVE [None]
  - CONFUSIONAL STATE [None]
  - DEMENTIA [None]
  - GAIT DISTURBANCE [None]
  - HYPERTENSION [None]
  - HYPOTENSION [None]
  - PNEUMONIA [None]
  - TRANSIENT ISCHAEMIC ATTACK [None]
